FAERS Safety Report 19789849 (Version 2)
Quarter: 2022Q1

REPORT INFORMATION
  Report Type: Spontaneous
  Country: US (occurrence: US)
  Receive Date: 20210904
  Receipt Date: 20220106
  Transmission Date: 20220423
  Serious: Yes (Other)
  Sender: FDA-Public Use
  Company Number: US-UCBSA-2021040668

PATIENT
  Sex: Female

DRUGS (1)
  1. CIMZIA [Suspect]
     Active Substance: CERTOLIZUMAB PEGOL
     Indication: Psoriatic arthropathy
     Dosage: 200 MILLIGRAM, EV 2 WEEKS(QOW)
     Route: 058
     Dates: start: 201808, end: 202112

REACTIONS (4)
  - Thyroid disorder [Unknown]
  - Injection site pain [Unknown]
  - Viral upper respiratory tract infection [Unknown]
  - Product quality issue [Unknown]

NARRATIVE: CASE EVENT DATE: 20180101
